FAERS Safety Report 10100830 (Version 1)
Quarter: 2014Q2

REPORT INFORMATION
  Report Type: Spontaneous
  Country: BE (occurrence: BE)
  Receive Date: 20140423
  Receipt Date: 20140423
  Transmission Date: 20141212
  Serious: Yes (Other)
  Sender: FDA-Public Use
  Company Number: BE-B.I. PHARMACEUTICALS,INC./RIDGEFIELD-2014-BI-17704BL

PATIENT
  Sex: Male
  Weight: 71 kg

DRUGS (8)
  1. PRADAXA [Suspect]
     Indication: ATRIAL FIBRILLATION
     Dosage: 300 MG
     Route: 048
  2. LANOXIN [Concomitant]
     Indication: ATRIAL FIBRILLATION
     Dosage: 0.25 MG
     Route: 048
  3. RENITEC [Concomitant]
     Indication: HYPERTENSION
     Dosage: 20 MG
     Route: 048
  4. MONOXIDINE [Concomitant]
     Indication: HYPERTENSION
     Dosage: 0.2 MG
     Route: 048
  5. ATORSTATINE [Concomitant]
     Indication: HYPERCHOLESTEROLAEMIA
     Dosage: 20 MG
     Route: 048
  6. MODURETIC [Concomitant]
     Indication: HYPERTENSION
     Dosage: DOSE PER APPLICATION: 5/50MG
     Route: 048
  7. TRIBVIT [Concomitant]
     Indication: VITAMIN SUPPLEMENTATION
     Route: 048
  8. STEOVIT [Concomitant]
     Indication: OSTEOPOROSIS PROPHYLAXIS
     Dosage: DOSE PER APPLICATION: 800/1000 AND DAILY DOSE: 800/1000
     Route: 048

REACTIONS (3)
  - Gastric disorder [Unknown]
  - Gastrointestinal disorder [Unknown]
  - Weight decreased [Unknown]
